FAERS Safety Report 9602252 (Version 1)
Quarter: 2013Q4

REPORT INFORMATION
  Report Type: Spontaneous
  Country: BR (occurrence: BR)
  Receive Date: 20131007
  Receipt Date: 20131007
  Transmission Date: 20140711
  Serious: Yes (Hospitalization)
  Sender: FDA-Public Use
  Company Number: BR-PFIZER INC-2013280957

PATIENT
  Age: 63 Year
  Sex: Male

DRUGS (2)
  1. LYRICA [Suspect]
     Indication: FIBROMYALGIA
     Dosage: 2 CAPSULE OF STRENGTH 75 MG, 2X/DAY
     Route: 048
     Dates: start: 2009
  2. FRONTAL [Suspect]
     Indication: PANIC DISORDER
     Dosage: 0.5 MG 1X/DAY AND 2 MG 1X/DAY
     Dates: start: 201307

REACTIONS (2)
  - Fibromyalgia [Unknown]
  - Panic disorder [Unknown]
